FAERS Safety Report 8079503-7 (Version None)
Quarter: 2012Q1

REPORT INFORMATION
  Report Type: 
  Country: None (occurrence: None)
  Receive Date: 20120128
  Receipt Date: 20110826
  Transmission Date: 20120608
  Serious: No
  Sender: FDA-Public Use
  Company Number: US-ABBOTT-11P-163-0849623-00

PATIENT
  Sex: Male
  Weight: 102.15 kg

DRUGS (2)
  1. MANY CONCOMITANT MEDICATION(S) [Concomitant]
     Indication: PRODUCT USED FOR UNKNOWN INDICATION
  2. HUMIRA [Suspect]
     Indication: PSORIATIC ARTHROPATHY
     Dates: start: 20110812

REACTIONS (2)
  - INFLUENZA LIKE ILLNESS [None]
  - DIARRHOEA [None]
